FAERS Safety Report 5765258-5 (Version None)
Quarter: 2008Q2

REPORT INFORMATION
  Report Type: 
  Country: None (occurrence: None)
  Receive Date: 20080609
  Receipt Date: 20080609
  Transmission Date: 20081010
  Serious: Yes (Life-Threatening, Hospitalization)
  Sender: FDA-Public Use
  Company Number: None

PATIENT
  Sex: Male
  Weight: 79.3795 kg

DRUGS (1)
  1. KEPPRA [Suspect]
     Indication: EPILEPSY
     Dosage: 750 2
     Dates: start: 20071208, end: 20080518

REACTIONS (5)
  - ABNORMAL BEHAVIOUR [None]
  - BRAIN INJURY [None]
  - CONVULSION [None]
  - MEMORY IMPAIRMENT [None]
  - RESPIRATORY ARREST [None]
